FAERS Safety Report 20390803 (Version 1)
Quarter: 2022Q1

REPORT INFORMATION
  Report Type: Spontaneous
  Country: GB (occurrence: GB)
  Receive Date: 20220128
  Receipt Date: 20220128
  Transmission Date: 20220423
  Serious: Yes (Death, Other)
  Sender: FDA-Public Use
  Company Number: None

PATIENT
  Age: 72 Year
  Sex: Male
  Weight: 70 kg

DRUGS (1)
  1. SERETIDE [Suspect]
     Active Substance: FLUTICASONE PROPIONATE\SALMETEROL XINAFOATE
     Indication: Chronic obstructive pulmonary disease
     Dosage: 2 PUFF(S), BID (250/25 MICROGRAMS 2 PUFFS TWICE A DAY.)
     Route: 055
     Dates: start: 20081211

REACTIONS (2)
  - Pneumonia [Fatal]
  - Medication error [Unknown]

NARRATIVE: CASE EVENT DATE: 20211229
